FAERS Safety Report 4330392-3 (Version None)
Quarter: 2004Q2

REPORT INFORMATION
  Report Type: 
  Country: None (occurrence: None)
  Receive Date: 20040402
  Receipt Date: 20040325
  Transmission Date: 20050107
  Serious: Yes (Other)
  Sender: FDA-Public Use
  Company Number: 200411317FR

PATIENT
  Age: 65 Year
  Sex: Female

DRUGS (10)
  1. LANTUS [Suspect]
     Indication: DIABETES MELLITUS NON-INSULIN-DEPENDENT
     Route: 058
     Dates: start: 20040215
  2. ACTONEL [Suspect]
     Indication: OSTEOPOROSIS
     Route: 048
  3. AMAREL [Concomitant]
     Indication: DIABETES MELLITUS NON-INSULIN-DEPENDENT
     Route: 048
     Dates: start: 20040216, end: 20040215
  4. PREDNISONE [Concomitant]
     Indication: RHEUMATOID ARTHRITIS
     Route: 048
  5. METFORMIN HCL [Concomitant]
     Indication: DIABETES MELLITUS NON-INSULIN-DEPENDENT
     Route: 048
  6. ISOPTIN [Concomitant]
     Indication: HYPERTENSION
     Route: 048
  7. APROVEL [Concomitant]
     Indication: HYPERTENSION
     Route: 048
  8. MOPRAL [Concomitant]
     Indication: RHEUMATOID ARTHRITIS
     Route: 048
  9. CALCIUM 2 NOS [Concomitant]
     Indication: RHEUMATOID ARTHRITIS
  10. DEROXAT [Concomitant]
     Indication: DEPRESSION
     Route: 048

REACTIONS (4)
  - GLYCOSYLATED HAEMOGLOBIN INCREASED [None]
  - LYMPHOCYTE COUNT ABNORMAL [None]
  - NEUTROPENIA [None]
  - WHITE BLOOD CELL COUNT DECREASED [None]
